FAERS Safety Report 10506023 (Version 1)
Quarter: 2014Q4

REPORT INFORMATION
  Report Type: Spontaneous
  Country: US (occurrence: US)
  Receive Date: 20141008
  Receipt Date: 20141008
  Transmission Date: 20150528
  Serious: Yes (Hospitalization, Other)
  Sender: FDA-Public Use
  Company Number: US-009507513-1410USA000929

PATIENT
  Age: 83 Year
  Sex: Female
  Weight: 63.49 kg

DRUGS (10)
  1. ZOCOR [Suspect]
     Active Substance: SIMVASTATIN
     Indication: PRODUCT USED FOR UNKNOWN INDICATION
     Dosage: 20 MG, UNK
     Route: 048
  2. TIKOSYN [Suspect]
     Active Substance: DOFETILIDE
     Indication: ATRIAL FIBRILLATION
     Dosage: 250 MICROGRAM, 2 IN 1 D
     Route: 048
     Dates: end: 20140527
  3. WARFARIN [Suspect]
     Active Substance: WARFARIN
     Indication: PRODUCT USED FOR UNKNOWN INDICATION
     Dosage: UNK
     Dates: start: 201404, end: 2014
  4. METOPROLOL [Concomitant]
     Active Substance: METOPROLOL
     Indication: ATRIAL FIBRILLATION
     Dosage: 6.25 MG, BID
  5. ERYTHROMYCIN. [Concomitant]
     Active Substance: ERYTHROMYCIN
     Dosage: LEFT EYE
     Route: 047
  6. CARDIZEM [Suspect]
     Active Substance: DILTIAZEM HYDROCHLORIDE
     Indication: PRODUCT USED FOR UNKNOWN INDICATION
  7. SYNTHROID [Suspect]
     Active Substance: LEVOTHYROXINE SODIUM
     Dosage: 0.05 UNK, UNK
     Dates: start: 2014
  8. PRINIVIL [Suspect]
     Active Substance: LISINOPRIL
     Indication: HYPERTENSION
     Dosage: 10 MG, UNK
  9. TIKOSYN [Suspect]
     Active Substance: DOFETILIDE
     Indication: ATRIAL FIBRILLATION
     Dosage: 125 MICROGRAM, 2 IN 1 D
     Route: 048
     Dates: start: 20140425, end: 2014
  10. SYNTHROID [Suspect]
     Active Substance: LEVOTHYROXINE SODIUM
     Indication: HYPOTHYROIDISM
     Dosage: 0.075 MG, 1 IN 1 D
     Dates: start: 1990

REACTIONS (23)
  - Hyperthyroidism [Unknown]
  - Retinal detachment [Recovered/Resolved]
  - Thyroid neoplasm [Unknown]
  - Blood pressure diastolic decreased [Unknown]
  - Salivary gland cancer [Unknown]
  - Heart rate abnormal [Unknown]
  - Drug level decreased [Unknown]
  - Fatigue [Unknown]
  - Arthralgia [Unknown]
  - Heart rate increased [Unknown]
  - Vitrectomy [Unknown]
  - Eye operation [Unknown]
  - Blindness [Unknown]
  - Gait disturbance [Unknown]
  - Joint warmth [Unknown]
  - Laboratory test abnormal [Unknown]
  - Blood pressure systolic increased [Unknown]
  - Cataract [Recovered/Resolved]
  - Glucose tolerance impaired [Unknown]
  - Atrial fibrillation [Unknown]
  - Heart rate decreased [Unknown]
  - Eye haemorrhage [Unknown]
  - Atrial fibrillation [Not Recovered/Not Resolved]

NARRATIVE: CASE EVENT DATE: 1996
